FAERS Safety Report 9841640 (Version 2)
Quarter: 2014Q1

REPORT INFORMATION
  Report Type: Spontaneous
  Country: HU (occurrence: HU)
  Receive Date: 20140124
  Receipt Date: 20140210
  Transmission Date: 20141002
  Serious: Yes (Hospitalization, Other)
  Sender: FDA-Public Use
  Company Number: HU-009507513-1401HUN010602

PATIENT
  Sex: 0

DRUGS (3)
  1. TEMOZOLOMIDE [Suspect]
     Indication: GLIOBLASTOMA MULTIFORME
     Dosage: 75 MG/M2 FOR 6 WEEKS
     Route: 048
  2. TEMOZOLOMIDE [Suspect]
     Dosage: 150 MG/M2 FOR 5 DAYS
     Route: 048
  3. TEMOZOLOMIDE [Suspect]
     Dosage: 200 MG/M2, EVERY 4 WEEKS
     Route: 048

REACTIONS (5)
  - Diverticulum [Unknown]
  - Diverticular perforation [Unknown]
  - Surgery [Unknown]
  - Constipation [Unknown]
  - Nausea [Unknown]
